FAERS Safety Report 4725972-7 (Version None)
Quarter: 2005Q3

REPORT INFORMATION
  Report Type: 
  Country: None (occurrence: None)
  Receive Date: 20050727
  Receipt Date: 20050706
  Transmission Date: 20060218
  Serious: Yes (Hospitalization, Other)
  Sender: FDA-Public Use
  Company Number: AU-GLAXOSMITHKLINE-B0387274A

PATIENT
  Age: 51 Year
  Sex: Male
  Weight: 65 kg

DRUGS (2)
  1. VALTREX [Suspect]
     Dosage: 1G THREE TIMES PER DAY
     Route: 048
     Dates: start: 20050621, end: 20050624
  2. PREDNISOLONE [Suspect]
     Route: 048
     Dates: start: 20050620, end: 20050704

REACTIONS (4)
  - DIZZINESS [None]
  - NAUSEA [None]
  - VESTIBULAR NEURONITIS [None]
  - VOMITING [None]
